FAERS Safety Report 10237253 (Version 1)
Quarter: 2014Q1

REPORT INFORMATION
  Report Type: Spontaneous
  Country: US (occurrence: None)
  Receive Date: 20140306
  Receipt Date: 20140306
  Transmission Date: 20141002
  Serious: Yes (Other)
  Sender: FDA-Public Use
  Company Number: 163-21880-13124766

PATIENT
  Age: 76 Year
  Sex: Male
  Weight: 64 kg

DRUGS (6)
  1. REVLIMID [Suspect]
     Indication: PLASMA CELL MYELOMA
     Dosage: 10 MG, 28 IN 28 D, PO?10/11/2013 - INTERRUPTED
     Route: 048
     Dates: start: 20131011
  2. MEPRON (ATOVAQUONE) [Concomitant]
  3. ACYCLOVIR (ACICLOVIR) (ACICLOVIR) [Concomitant]
  4. DETROL (TOLTERODINE L-TARTRATE) [Concomitant]
  5. VITAMIN D (EROGCALCIFEROL) [Concomitant]
  6. CALCIUM (CALCIUM) [Concomitant]

REACTIONS (3)
  - Platelet count decreased [None]
  - Neutrophil count decreased [None]
  - Haemoglobin decreased [None]
